FAERS Safety Report 18610717 (Version 1)
Quarter: 2020Q4

REPORT INFORMATION
  Report Type: Report from Study
  Country: KR (occurrence: KR)
  Receive Date: 20201214
  Receipt Date: 20201214
  Transmission Date: 20210114
  Serious: Yes (Death)
  Sender: FDA-Public Use
  Company Number: KR-GLAXOSMITHKLINE-KR2020240670

PATIENT
  Age: 50 Year
  Sex: Female

DRUGS (1)
  1. NIRAPARIB [Suspect]
     Active Substance: NIRAPARIB
     Indication: OVARIAN CANCER RECURRENT
     Dosage: UNK
     Route: 065
     Dates: start: 20200108, end: 20200205

REACTIONS (1)
  - Hyponatraemia [Fatal]

NARRATIVE: CASE EVENT DATE: 20200215
